FAERS Safety Report 6018144-X (Version None)
Quarter: 2008Q4

REPORT INFORMATION
  Report Type: 
  Country: None (occurrence: None)
  Receive Date: 20081223
  Receipt Date: 20081223
  Transmission Date: 20090506
  Serious: Yes (Other)
  Sender: FDA-Public Use
  Company Number: US-PFIZER INC-2008082757

PATIENT
  Sex: Female
  Weight: 77.1 kg

DRUGS (2)
  1. CHANTIX [Suspect]
     Dates: start: 20070601, end: 20070601
  2. VITAMINS [Concomitant]

REACTIONS (6)
  - ABNORMAL DREAMS [None]
  - ADVERSE EVENT [None]
  - ANXIETY [None]
  - CLUMSINESS [None]
  - DRUG INEFFECTIVE [None]
  - POST CONCUSSION SYNDROME [None]
